FAERS Safety Report 19441417 (Version 1)
Quarter: 2021Q2

REPORT INFORMATION
  Report Type: Spontaneous
  Country: NP (occurrence: NP)
  Receive Date: 20210621
  Receipt Date: 20210621
  Transmission Date: 20210717
  Serious: Yes (Death, Other)
  Sender: FDA-Public Use
  Company Number: NVSC2020NP276040

PATIENT
  Age: 60 Year
  Sex: Female

DRUGS (1)
  1. GLIVEC [Suspect]
     Active Substance: IMATINIB MESYLATE
     Indication: CHRONIC MYELOID LEUKAEMIA
     Dosage: 400 MG (4 X 100MG)
     Route: 065

REACTIONS (6)
  - Swelling [Unknown]
  - Joint injury [Unknown]
  - Death [Fatal]
  - Second primary malignancy [Unknown]
  - Cervix carcinoma [Unknown]
  - Fall [Unknown]

NARRATIVE: CASE EVENT DATE: 202010
